FAERS Safety Report 6894234-4 (Version None)
Quarter: 2010Q3

REPORT INFORMATION
  Report Type: 
  Country: None (occurrence: None)
  Receive Date: 20100802
  Receipt Date: 20100720
  Transmission Date: 20110219
  Serious: Yes (Life-Threatening, Hospitalization)
  Sender: FDA-Public Use
  Company Number: PHHY2010JP36195

PATIENT
  Sex: Male
  Weight: 58 kg

DRUGS (9)
  1. DIOVAN [Suspect]
     Indication: HYPERTENSION
     Dosage: 80 MG, QD
     Route: 048
     Dates: start: 20080229, end: 20080918
  2. DIOVAN [Suspect]
     Dosage: 160 MG, QD
     Route: 048
     Dates: start: 20080919
  3. PRERAN [Concomitant]
     Indication: HYPERTENSION
     Dosage: 2 MG
     Route: 048
     Dates: start: 20060822, end: 20080228
  4. ATELEC [Concomitant]
     Indication: HYPERTENSION
     Dosage: 10 MG
     Route: 048
     Dates: start: 20080229
  5. ATELEC [Concomitant]
     Dosage: 20 MG
     Route: 048
  6. OLMESARTAN MEDOXOMIL [Concomitant]
     Indication: HYPERTENSION
     Dosage: 40 MG
     Route: 048
     Dates: start: 20071011, end: 20080228
  7. GLIMICRON [Concomitant]
     Dosage: 20 MG
     Route: 048
     Dates: start: 20060426, end: 20091001
  8. ACTOS [Concomitant]
     Dosage: 15 MG
     Route: 048
     Dates: start: 20091002
  9. LASIX [Concomitant]
     Dosage: 20 MG
     Route: 048
     Dates: start: 20100106

REACTIONS (3)
  - ATRIOVENTRICULAR BLOCK COMPLETE [None]
  - CARDIAC PACEMAKER INSERTION [None]
  - DYSPNOEA [None]
